FAERS Safety Report 4347346-3 (Version None)
Quarter: 2004Q2

REPORT INFORMATION
  Report Type: 
  Country: None (occurrence: None)
  Receive Date: 20040426
  Receipt Date: 20040426
  Transmission Date: 20050107
  Serious: Yes (Hospitalization)
  Sender: FDA-Public Use
  Company Number: None

PATIENT
  Sex: Female
  Weight: 56.246 kg

DRUGS (8)
  1. SYMBYAX [Suspect]
     Indication: ANXIETY
     Dosage: 1 DAILY ORAL
     Route: 048
     Dates: start: 20040323, end: 20040413
  2. SYMBYAX [Suspect]
     Indication: BIPOLAR DISORDER
     Dosage: 1 DAILY ORAL
     Route: 048
     Dates: start: 20040323, end: 20040413
  3. SYMBYAX [Suspect]
     Indication: DEPRESSION
     Dosage: 1 DAILY ORAL
     Route: 048
     Dates: start: 20040323, end: 20040413
  4. LITHIUM CARBONATE [Concomitant]
  5. FUROSEMIDE [Concomitant]
  6. KCL TAB [Concomitant]
  7. M.V.I. [Concomitant]
  8. VITAMIN E [Concomitant]

REACTIONS (6)
  - ALCOHOLISM [None]
  - DRUG INTERACTION [None]
  - DRUG WITHDRAWAL SYNDROME [None]
  - MEMORY IMPAIRMENT [None]
  - SELF INJURIOUS BEHAVIOUR [None]
  - SUICIDAL IDEATION [None]
